FAERS Safety Report 4476653-9 (Version None)
Quarter: 2004Q4

REPORT INFORMATION
  Report Type: 
  Country: None (occurrence: None)
  Receive Date: 20041015
  Receipt Date: 20041015
  Transmission Date: 20050328
  Serious: Yes (Life-Threatening)
  Sender: FDA-Public Use
  Company Number: None

PATIENT
  Age: 47 Year
  Sex: Female
  Weight: 74.8435 kg

DRUGS (4)
  1. ENBREL [Suspect]
     Indication: RHEUMATOID ARTHRITIS
     Dosage: 1 VIAL   2 TIMES/WEEK   SUBCUTANEO
     Route: 058
     Dates: start: 19990415, end: 20040302
  2. MINOCIN [Concomitant]
  3. SULFASALAZINE [Concomitant]
  4. CELEBREX [Concomitant]

REACTIONS (6)
  - DIFFUSE LARGE B-CELL LYMPHOMA [None]
  - FEELING HOT [None]
  - LYMPHADENOPATHY [None]
  - NODULE [None]
  - PAIN [None]
  - TENDERNESS [None]
